FAERS Safety Report 16229511 (Version 4)
Quarter: 2020Q3

REPORT INFORMATION
  Report Type: Spontaneous
  Country: GB (occurrence: GB)
  Receive Date: 20190423
  Receipt Date: 20200705
  Transmission Date: 20201102
  Serious: Yes (Hospitalization, Other)
  Sender: FDA-Public Use
  Company Number: PHHY2019GB087284

PATIENT
  Age: 64 Year
  Sex: Female

DRUGS (19)
  1. AMOXYCILLIN [Concomitant]
     Active Substance: AMOXICILLIN
     Dosage: UNK
     Route: 065
     Dates: start: 20160122
  2. TAZOCIN [Concomitant]
     Active Substance: PIPERACILLIN SODIUM\TAZOBACTAM SODIUM
     Indication: PYREXIA
     Dosage: 4.5 MG, QD
     Route: 042
     Dates: start: 20151005, end: 20151012
  3. AMOXYCILLIN [Concomitant]
     Active Substance: AMOXICILLIN
     Indication: CELLULITIS
     Dosage: UNK
     Route: 048
     Dates: start: 20150929
  4. DOCETAXEL. [Suspect]
     Active Substance: DOCETAXEL
     Dosage: 80 MG, QD
     Route: 042
     Dates: start: 20150622, end: 20150622
  5. PERTUZUMAB. [Suspect]
     Active Substance: PERTUZUMAB
     Indication: BREAST CANCER METASTATIC
     Dosage: LOADING DOSE
     Route: 042
     Dates: start: 20150520, end: 20150520
  6. PERTUZUMAB. [Suspect]
     Active Substance: PERTUZUMAB
     Dosage: 420 MG, Q3W
     Route: 042
     Dates: start: 20151119
  7. TRASTUZUMAB. [Suspect]
     Active Substance: TRASTUZUMAB
     Indication: BREAST CANCER METASTATIC
     Dosage: LOADING DOSE
     Route: 042
     Dates: start: 20150521, end: 20150521
  8. RIVAROXABAN [Concomitant]
     Active Substance: RIVAROXABAN
     Dosage: 1 OT, QD
     Route: 048
     Dates: start: 20151104
  9. RIVAROXABAN [Concomitant]
     Active Substance: RIVAROXABAN
     Indication: PYREXIA
     Dosage: 15 MG, QD
     Route: 048
     Dates: start: 20151014, end: 20151103
  10. FLUCLOXACILLIN [Concomitant]
     Active Substance: FLUCLOXACILLIN
     Indication: CELLULITIS
     Dosage: UNK
     Route: 048
     Dates: start: 20150929
  11. CALOGEN EXTRA [Concomitant]
     Dosage: SHORTS
     Route: 048
  12. DOCETAXEL. [Suspect]
     Active Substance: DOCETAXEL
     Indication: BREAST CANCER METASTATIC
     Dosage: 130 MG, QD
     Route: 042
     Dates: start: 20150522, end: 20150522
  13. CALOGEN EXTRA [Concomitant]
     Indication: PRODUCT USED FOR UNKNOWN INDICATION
     Dosage: UNK (SHORTS)
     Route: 048
  14. DALTEPARIN [Concomitant]
     Active Substance: DALTEPARIN
     Indication: PRODUCT USED FOR UNKNOWN INDICATION
     Dosage: UNK
     Route: 058
     Dates: start: 20151005, end: 20151014
  15. STREPTOKINASE [Concomitant]
     Active Substance: STREPTOKINASE
     Indication: PRODUCT USED FOR UNKNOWN INDICATION
     Dosage: 250000
     Route: 042
     Dates: start: 20151005, end: 20151014
  16. TRASTUZUMAB. [Suspect]
     Active Substance: TRASTUZUMAB
     Dosage: 399 MG, Q3W (MAINTAINANCE DOSE)
     Route: 042
     Dates: start: 20150622
  17. FLUCONAZOLE. [Concomitant]
     Active Substance: FLUCONAZOLE
     Indication: PRODUCT USED FOR UNKNOWN INDICATION
     Dosage: UNK
     Route: 048
     Dates: start: 20160122, end: 20160203
  18. DOCETAXEL. [Suspect]
     Active Substance: DOCETAXEL
     Dosage: 90 MG, Q3W
     Route: 042
     Dates: start: 20150714, end: 20150915
  19. PERTUZUMAB. [Suspect]
     Active Substance: PERTUZUMAB
     Dosage: MAINTAINANCE DOSE.
     Route: 042
     Dates: start: 20150622, end: 20151119

REACTIONS (10)
  - Device related infection [Recovered/Resolved]
  - Lower respiratory tract infection [Recovered/Resolved]
  - Productive cough [Recovered/Resolved]
  - Catheter site erythema [Recovered/Resolved]
  - Sepsis [Recovered/Resolved]
  - Nausea [Recovered/Resolved]
  - Decreased appetite [Recovered/Resolved]
  - Catheter site hypersensitivity [Recovered/Resolved]
  - Cellulitis [Recovered/Resolved]
  - Pulmonary embolism [Recovered/Resolved]

NARRATIVE: CASE EVENT DATE: 201509
